FAERS Safety Report 22963041 (Version 2)
Quarter: 2023Q4

REPORT INFORMATION
  Report Type: Report from Study
  Country: ES (occurrence: ES)
  Receive Date: 20230920
  Receipt Date: 20231019
  Transmission Date: 20240109
  Serious: Yes (Hospitalization)
  Sender: FDA-Public Use
  Company Number: ES-JNJFOC-20230848795

PATIENT
  Age: 75 Year
  Sex: Male
  Weight: 59.5 kg

DRUGS (7)
  1. TECLISTAMAB [Suspect]
     Active Substance: TECLISTAMAB
     Indication: Plasma cell myeloma
     Dosage: MEDICAL KIT: 946825, 946824?3000 MCG/KG EVERY 2 WEEKS
     Route: 058
     Dates: start: 20220119, end: 20230801
  2. DARATUMUMAB [Suspect]
     Active Substance: DARATUMUMAB
     Indication: Plasma cell myeloma
     Dosage: MEDICAL KIT 113738
     Route: 058
     Dates: start: 20220118, end: 20230801
  3. IVIGLOB EX [Concomitant]
     Active Substance: HUMAN IMMUNOGLOBULIN G
     Dates: start: 20220705, end: 20221226
  4. IVIGLOB EX [Concomitant]
     Active Substance: HUMAN IMMUNOGLOBULIN G
     Dates: start: 20221122, end: 20221122
  5. IVIGLOB EX [Concomitant]
     Active Substance: HUMAN IMMUNOGLOBULIN G
     Dates: start: 20230109, end: 20230109
  6. IVIGLOB EX [Concomitant]
     Active Substance: HUMAN IMMUNOGLOBULIN G
     Dates: start: 20230324, end: 20230324
  7. IVIGLOB EX [Concomitant]
     Active Substance: HUMAN IMMUNOGLOBULIN G
     Dates: start: 20230818

REACTIONS (1)
  - Abdominal infection [Recovered/Resolved]

NARRATIVE: CASE EVENT DATE: 20230821
